FAERS Safety Report 8560912-4 (Version None)
Quarter: 2012Q3

REPORT INFORMATION
  Report Type: 
  Country: None (occurrence: None)
  Receive Date: 20120802
  Receipt Date: 20120727
  Transmission Date: 20120928
  Serious: Yes (Other)
  Sender: FDA-Public Use
  Company Number: US-FRI-1000037465

PATIENT
  Age: 53 Year
  Sex: Female

DRUGS (11)
  1. VITAMIN B-12 [Concomitant]
  2. LEVOTHROID [Suspect]
     Indication: HYPOTHYROIDISM
     Dosage: 75 MCG
     Route: 048
     Dates: start: 20050101
  3. VITAMIN D [Concomitant]
  4. ASPIRIN [Concomitant]
     Dosage: 81 MG
  5. LISINOPRIL [Concomitant]
     Indication: HYPERTENSION
  6. GINKGO [Concomitant]
  7. M.V.I. [Concomitant]
  8. LEVOTHROID [Suspect]
     Dosage: 75 MCG MONDAY-SATURDAY
  9. VITAMIN E [Concomitant]
  10. FISH OIL [Concomitant]
  11. ASCORBIC ACID [Concomitant]

REACTIONS (3)
  - CARDIAC FLUTTER [None]
  - AMNESIA [None]
  - LETHARGY [None]
